FAERS Safety Report 9776105 (Version 2)
Quarter: 2014Q1

REPORT INFORMATION
  Report Type: Spontaneous
  Country: IT (occurrence: IT)
  Receive Date: 20131220
  Receipt Date: 20140221
  Transmission Date: 20141002
  Serious: Yes (Hospitalization)
  Sender: FDA-Public Use
  Company Number: IT-BRISTOL-MYERS SQUIBB COMPANY-19919414

PATIENT
  Age: 86 Year
  Sex: Female

DRUGS (12)
  1. METFORMIN HCL [Suspect]
     Indication: INTENTIONAL OVERDOSE
     Route: 048
     Dates: start: 20130417, end: 20130417
  2. BISOPROLOL [Suspect]
     Indication: INTENTIONAL OVERDOSE
     Route: 048
     Dates: start: 20130417, end: 20130417
  3. TAVOR [Suspect]
     Indication: INTENTIONAL OVERDOSE
     Route: 048
     Dates: start: 20130417, end: 20130417
  4. CIPRALEX [Suspect]
     Indication: INTENTIONAL OVERDOSE
     Dosage: FILM COATED TABS
     Route: 048
     Dates: start: 20130417, end: 20130417
  5. DIAMICRON [Suspect]
     Indication: INTENTIONAL OVERDOSE
     Dosage: MODIFIED RELASE TABS
     Route: 048
     Dates: start: 20130417, end: 20130417
  6. SERENASE [Suspect]
     Indication: INTENTIONAL OVERDOSE
     Dosage: TABS
     Route: 048
     Dates: start: 20130417, end: 20130417
  7. TACHIPIRINA [Suspect]
     Indication: INTENTIONAL OVERDOSE
     Route: 048
     Dates: start: 20130417, end: 20130417
  8. COUMADIN TABS 5 MG [Concomitant]
  9. COLECALCIFEROL [Concomitant]
     Dosage: 1DF:100 UNITS NOS
     Route: 030
  10. NEXIUM [Concomitant]
  11. ISOPTIN [Concomitant]
     Dosage: FILM COATED
  12. MACROGOL [Concomitant]
     Dosage: 1DF:20 UNITS NOS

REACTIONS (5)
  - Bradycardia [Recovered/Resolved]
  - Psychomotor hyperactivity [Recovered/Resolved]
  - Sopor [Recovered/Resolved]
  - Intentional overdose [Recovered/Resolved]
  - Drug abuse [Unknown]
